FAERS Safety Report 9321905 (Version 1)
Quarter: 2013Q2

REPORT INFORMATION
  Report Type: Spontaneous
  Country: US (occurrence: US)
  Receive Date: 20130531
  Receipt Date: 20130531
  Transmission Date: 20140414
  Serious: Yes (Other)
  Sender: FDA-Public Use
  Company Number: US-PFIZER INC-2013164689

PATIENT
  Sex: Male

DRUGS (1)
  1. LIPITOR [Suspect]
     Dosage: UNK
     Dates: start: 2008

REACTIONS (4)
  - Activities of daily living impaired [Unknown]
  - Muscle disorder [Unknown]
  - Myalgia [Unknown]
  - Insomnia [Unknown]
